FAERS Safety Report 26051297 (Version 1)
Quarter: 2025Q4

REPORT INFORMATION
  Report Type: Spontaneous
  Country: EU (occurrence: EU)
  Receive Date: 20251117
  Receipt Date: 20251117
  Transmission Date: 20260118
  Serious: Yes (Other)
  Sender: AMGEN
  Company Number: EU-UCBSA-2025071614

PATIENT
  Age: 62 Year
  Sex: Female

DRUGS (1)
  1. EVENITY [Suspect]
     Active Substance: ROMOSOZUMAB-AQQG
     Indication: Osteoporosis postmenopausal
     Dosage: UNK
     Route: 065
     Dates: start: 202505

REACTIONS (4)
  - Accident [Unknown]
  - Leg amputation [Unknown]
  - Lower limb fracture [Unknown]
  - Impaired healing [Unknown]

NARRATIVE: CASE EVENT DATE: 20250101
